FAERS Safety Report 6073674-X (Version None)
Quarter: 2009Q1

REPORT INFORMATION
  Report Type: 
  Country: None (occurrence: None)
  Receive Date: 20090211
  Receipt Date: 20090126
  Transmission Date: 20090719
  Serious: Yes (Life-Threatening, Other)
  Sender: FDA-Public Use
  Company Number: JP-PFIZER INC-2008095500

PATIENT

DRUGS (8)
  1. CAMPTOSAR [Suspect]
     Indication: COLON CANCER
     Dosage: 215 MG (150 MG/M2), UNK
     Route: 041
     Dates: start: 20081014, end: 20081028
  2. CAMPTOSAR [Suspect]
     Dosage: 215 MG, UNK
     Dates: start: 20081014, end: 20081028
  3. FLUOROURACIL [Suspect]
     Indication: COLON CANCER
     Dosage: 575 MG (400 MG/M2), UNK
     Route: 040
     Dates: start: 20081014, end: 20081028
  4. FLUOROURACIL [Suspect]
     Dosage: 3450 MG (2400 MG/M2), UNK
     Route: 042
     Dates: start: 20081014, end: 20081028
  5. CALCIUM LEVOFOLINATE [Concomitant]
     Indication: COLON CANCER
     Dosage: 285 MG (200 MG/M2), UNK
     Route: 041
     Dates: start: 20081014, end: 20081028
  6. DECADRON [Concomitant]
     Indication: PREMEDICATION
     Dosage: 8 MG, UNK
     Route: 041
     Dates: start: 20081014, end: 20081028
  7. KYTRIL [Concomitant]
     Indication: PREMEDICATION
     Dosage: 3 MG, UNK
     Route: 041
     Dates: start: 20081014, end: 20081028
  8. TERPERAN [Concomitant]
     Indication: NAUSEA
     Dosage: 10 MG, UNK
     Route: 042
     Dates: start: 20081015, end: 20081015

REACTIONS (3)
  - ENCEPHALOPATHY [None]
  - LEUKOPENIA [None]
  - NEUTROPENIA [None]
